FAERS Safety Report 25711433 (Version 2)
Quarter: 2025Q3

REPORT INFORMATION
  Report Type: Spontaneous
  Country: EU (occurrence: EU)
  Receive Date: 20250821
  Receipt Date: 20250905
  Transmission Date: 20251021
  Serious: Yes (Other)
  Sender: TEVA
  Company Number: EU-TEVA-VS-3363094

PATIENT
  Age: 32 Year
  Sex: Female

DRUGS (20)
  1. PREDNISONE [Suspect]
     Active Substance: PREDNISONE
     Indication: Antiacetylcholine receptor antibody positive
     Route: 065
  2. PREDNISONE [Suspect]
     Active Substance: PREDNISONE
     Indication: Antiacetylcholine receptor antibody positive
     Dosage: RECEIVED UP TO 60 MG
     Route: 065
  3. PREDNISONE [Suspect]
     Active Substance: PREDNISONE
     Indication: Antiacetylcholine receptor antibody positive
     Route: 065
  4. PREDNISONE [Suspect]
     Active Substance: PREDNISONE
     Indication: Antiacetylcholine receptor antibody positive
     Route: 065
  5. PREDNISONE [Suspect]
     Active Substance: PREDNISONE
     Indication: Antiacetylcholine receptor antibody positive
     Route: 065
     Dates: start: 202308
  6. PREDNISONE [Suspect]
     Active Substance: PREDNISONE
     Indication: Antiacetylcholine receptor antibody positive
     Route: 065
  7. PREDNISONE [Suspect]
     Active Substance: PREDNISONE
     Indication: Antiacetylcholine receptor antibody positive
     Route: 065
  8. PREDNISONE [Suspect]
     Active Substance: PREDNISONE
     Indication: Antiacetylcholine receptor antibody positive
     Route: 065
  9. PREDNISONE [Suspect]
     Active Substance: PREDNISONE
     Indication: Antiacetylcholine receptor antibody positive
     Dosage: RECEIVED 2.5-60 MG
     Route: 065
  10. PREDNISONE [Suspect]
     Active Substance: PREDNISONE
     Indication: Antiacetylcholine receptor antibody positive
     Route: 065
  11. PREDNISONE [Suspect]
     Active Substance: PREDNISONE
     Indication: Antiacetylcholine receptor antibody positive
     Route: 065
  12. IMMUNE GLOBULIN NOS [Suspect]
     Active Substance: IMMUNE GLOBULIN NOS
     Indication: Antiacetylcholine receptor antibody positive
     Route: 042
  13. PIPERACILLIN AND TAZOBACTAM [Concomitant]
     Active Substance: PIPERACILLIN SODIUM\TAZOBACTAM SODIUM
     Indication: Pneumonia
     Route: 065
  14. EPIRUBICIN [Concomitant]
     Active Substance: EPIRUBICIN
     Indication: Thymoma
     Route: 065
  15. PYRIDOSTIGMINE [Suspect]
     Active Substance: PYRIDOSTIGMINE
     Indication: Antiacetylcholine receptor antibody positive
     Route: 065
     Dates: start: 202308
  16. PYRIDOSTIGMINE [Suspect]
     Active Substance: PYRIDOSTIGMINE
     Indication: Antiacetylcholine receptor antibody positive
     Dosage: RECEIVED UP TO 240 MG
     Route: 065
  17. PYRIDOSTIGMINE [Suspect]
     Active Substance: PYRIDOSTIGMINE
     Indication: Antiacetylcholine receptor antibody positive
     Route: 065
  18. PYRIDOSTIGMINE [Suspect]
     Active Substance: PYRIDOSTIGMINE
     Indication: Antiacetylcholine receptor antibody positive
     Dosage: RECEIVED 60-240 MG
     Route: 065
  19. CISPLATIN [Concomitant]
     Active Substance: CISPLATIN
     Indication: Thymoma
     Route: 065
  20. CYCLOPHOSPHAMIDE [Concomitant]
     Active Substance: CYCLOPHOSPHAMIDE
     Indication: Thymoma
     Route: 065

REACTIONS (4)
  - Drug ineffective [Unknown]
  - Increased upper airway secretion [Unknown]
  - Maternal exposure during pregnancy [Unknown]
  - Normal newborn [Unknown]

NARRATIVE: CASE EVENT DATE: 20230801
